FAERS Safety Report 14309144 (Version 3)
Quarter: 2019Q4

REPORT INFORMATION
  Report Type: Spontaneous
  Country: US (occurrence: US)
  Receive Date: 20171220
  Receipt Date: 20191226
  Transmission Date: 20200122
  Serious: Yes (Other)
  Sender: FDA-Public Use
  Company Number: US-PFIZER INC-2017541796

PATIENT
  Age: 42 Year
  Sex: Male

DRUGS (8)
  1. CIALIS [Suspect]
     Active Substance: TADALAFIL
     Dosage: 20 MG, ALTERNATE DAY (AS NEEDED FOR SEXUAL ACTIVITY)
     Route: 048
     Dates: start: 20090610
  2. VIAGRA [Suspect]
     Active Substance: SILDENAFIL CITRATE
     Indication: ERECTILE DYSFUNCTION
     Dosage: UNK
     Route: 048
     Dates: start: 201007, end: 201606
  3. VIAGRA [Suspect]
     Active Substance: SILDENAFIL CITRATE
     Dosage: 100 MG, (1 HOUR BEFORE SEXUAL ACTIVITY)
     Route: 048
     Dates: start: 20100715, end: 20110110
  4. ENDOCET [Concomitant]
     Active Substance: ACETAMINOPHEN\OXYCODONE HYDROCHLORIDE
     Indication: PAIN
     Dosage: UNK
     Dates: start: 20030705
  5. METOCLOPRAMIDE. [Concomitant]
     Active Substance: METOCLOPRAMIDE
     Indication: DYSPEPSIA
     Dosage: UNK
     Dates: start: 20070203
  6. ALPRAZOLAM. [Concomitant]
     Active Substance: ALPRAZOLAM
     Indication: ANXIETY
     Dosage: UNK
     Dates: start: 20030717, end: 20100618
  7. CIALIS [Suspect]
     Active Substance: TADALAFIL
     Indication: ERECTILE DYSFUNCTION
     Dosage: UNK
     Route: 048
     Dates: start: 200906, end: 201007
  8. DIAZEPAM. [Concomitant]
     Active Substance: DIAZEPAM
     Indication: ANXIETY
     Dosage: UNK
     Dates: start: 20040614

REACTIONS (3)
  - Malignant melanoma in situ [Unknown]
  - Malignant melanoma [Unknown]
  - Melanoma recurrent [Unknown]

NARRATIVE: CASE EVENT DATE: 2013
